FAERS Safety Report 16116371 (Version 2)
Quarter: 2019Q2

REPORT INFORMATION
  Report Type: Report from Study
  Country: None (occurrence: TR)
  Receive Date: 20190326
  Receipt Date: 20190401
  Transmission Date: 20190711
  Serious: Yes (Hospitalization)
  Sender: FDA-Public Use
  Company Number: TR-ABBVIE-19S-161-2714503-00

PATIENT
  Age: 73 Year
  Sex: Male
  Weight: 80 kg

DRUGS (2)
  1. DUODOPA [Suspect]
     Active Substance: CARBIDOPA\LEVODOPA
     Indication: PARKINSON^S DISEASE
     Dosage: MD (ML): 5.00 CD (ML): 1.60 ED (ML): 0.50, INTERRUPTED
     Route: 050
     Dates: start: 20190304, end: 20190319
  2. DUODOPA [Suspect]
     Active Substance: CARBIDOPA\LEVODOPA
     Dosage: MD (ML): 5,00,CD (ML): 1,60 ED: 0,50 (ML)
     Route: 050
     Dates: start: 20190323

REACTIONS (2)
  - Gastrointestinal injury [Recovered/Resolved]
  - Stoma site pain [Recovered/Resolved]

NARRATIVE: CASE EVENT DATE: 20190319
